FAERS Safety Report 7376659-6 (Version None)
Quarter: 2011Q1

REPORT INFORMATION
  Report Type: 
  Country: None (occurrence: None)
  Receive Date: 20110325
  Receipt Date: 20110322
  Transmission Date: 20110831
  Serious: Yes (Death)
  Sender: FDA-Public Use
  Company Number: CA-PFIZER INC-2011063354

PATIENT
  Sex: Female

DRUGS (1)
  1. DETROL LA [Suspect]
     Dosage: 2 MG, 1X/DAY IN THE MORNING
     Route: 048
     Dates: start: 20100817, end: 20100817

REACTIONS (1)
  - DEATH [None]
